FAERS Safety Report 12130163 (Version 1)
Quarter: 2016Q1

REPORT INFORMATION
  Report Type: Spontaneous
  Country: CA (occurrence: CA)
  Receive Date: 20160229
  Receipt Date: 20160229
  Transmission Date: 20160526
  Serious: Yes (Other)
  Sender: FDA-Public Use
  Company Number: CA-HOSPIRA-3193959

PATIENT
  Age: 21 Year
  Sex: Male

DRUGS (8)
  1. PHENYTOIN. [Concomitant]
     Active Substance: PHENYTOIN
     Indication: ELECTROENCEPHALOGRAM
  2. PHENOBARBITAL. [Concomitant]
     Active Substance: PHENOBARBITAL
     Indication: ELECTROENCEPHALOGRAM
  3. MIDAZOLAM [Suspect]
     Active Substance: MIDAZOLAM\MIDAZOLAM HYDROCHLORIDE
     Indication: ELECTROENCEPHALOGRAM
  4. ISOFLURANE. [Suspect]
     Active Substance: ISOFLURANE
     Indication: ANAESTHESIA PROCEDURE
  5. VALPROIC ACID. [Concomitant]
     Active Substance: VALPROIC ACID
     Indication: ELECTROENCEPHALOGRAM
  6. METHYLPREDNISOLONE. [Concomitant]
     Active Substance: METHYLPREDNISOLONE
     Indication: ELECTROENCEPHALOGRAM
     Route: 042
  7. PROPOFOL. [Suspect]
     Active Substance: PROPOFOL
     Indication: ELECTROENCEPHALOGRAM
  8. LEVETIRACETAM. [Concomitant]
     Active Substance: LEVETIRACETAM
     Indication: ELECTROENCEPHALOGRAM

REACTIONS (1)
  - Intestinal ischaemia [Unknown]
